FAERS Safety Report 9235821 (Version 3)
Quarter: 2014Q1

REPORT INFORMATION
  Report Type: Report from Study
  Country: US (occurrence: US)
  Receive Date: 20130417
  Receipt Date: 20140130
  Transmission Date: 20141002
  Serious: Yes (Hospitalization, Other)
  Sender: FDA-Public Use
  Company Number: PHEH2012US017948

PATIENT
  Sex: Female

DRUGS (2)
  1. GLEEVEC [Suspect]
     Indication: CHRONIC MYELOID LEUKAEMIA
     Dosage: 400 MG, QD
     Route: 048
     Dates: start: 201110
  2. GLEEVEC [Interacting]
     Dosage: 400 MG, ONCE DAILY
     Route: 048

REACTIONS (10)
  - Nausea [Unknown]
  - Abdominal pain upper [Unknown]
  - Fall [Unknown]
  - Diarrhoea [Unknown]
  - Menstruation irregular [Unknown]
  - Balance disorder [Unknown]
  - Weight increased [Unknown]
  - Oedema [Unknown]
  - Asthenia [Unknown]
  - Back pain [Unknown]
